FAERS Safety Report 5532947-7 (Version None)
Quarter: 2007Q4

REPORT INFORMATION
  Report Type: 
  Country: None (occurrence: None)
  Receive Date: 20071128
  Receipt Date: 20071114
  Transmission Date: 20080405
  Serious: Yes (Hospitalization)
  Sender: FDA-Public Use
  Company Number: 2007002238

PATIENT
  Age: 37 Year
  Sex: Male

DRUGS (1)
  1. TARCEVA [Suspect]
     Indication: NASOPHARYNGEAL CANCER
     Dosage: ORAL
     Route: 048

REACTIONS (2)
  - ABDOMINAL PAIN [None]
  - BLOOD LACTATE DEHYDROGENASE [None]
